FAERS Safety Report 6277674-6 (Version None)
Quarter: 2009Q3

REPORT INFORMATION
  Report Type: 
  Country: None (occurrence: None)
  Receive Date: 20090717
  Receipt Date: 20090717
  Transmission Date: 20100115
  Serious: Yes (Hospitalization)
  Sender: FDA-Public Use
  Company Number: None

PATIENT
  Sex: Female
  Weight: 44 kg

DRUGS (7)
  1. ABRAXANE [Suspect]
     Indication: OVARIAN CANCER
     Dosage: 351 MG D1/CYCLE 042
     Dates: start: 20090428, end: 20090707
  2. VANDETANIB [Suspect]
     Indication: OVARIAN CANCER
     Dosage: 200 MG QD X 21 DAYS 047
     Dates: start: 20090428, end: 20090711
  3. PROTONIX [Concomitant]
  4. CARAFATE [Concomitant]
  5. HYDRALZAINE [Concomitant]
  6. COREG [Concomitant]
  7. INSULIN [Concomitant]

REACTIONS (2)
  - CHEST PAIN [None]
  - GASTROOESOPHAGEAL REFLUX DISEASE [None]
